FAERS Safety Report 10156247 (Version 2)
Quarter: 2014Q2

REPORT INFORMATION
  Report Type: Spontaneous
  Country: NL (occurrence: NL)
  Receive Date: 20140507
  Receipt Date: 20140603
  Transmission Date: 20141212
  Serious: Yes (Hospitalization, Other)
  Sender: FDA-Public Use
  Company Number: NL-AMGEN-NLDSP2014033009

PATIENT
  Age: 57 Year
  Sex: Female
  Weight: 86 kg

DRUGS (6)
  1. ENBREL [Suspect]
     Indication: RHEUMATOID ARTHRITIS
     Dosage: 50 MG, WEEKLY
     Route: 058
     Dates: start: 2009
  2. METHOTREXATE [Concomitant]
     Dosage: 20 MG, QWK
     Dates: start: 200001
  3. FOLIC ACID [Concomitant]
     Dosage: 5 MG, 6 TIMES/WK
     Dates: start: 200001
  4. THYRAX                             /00068001/ [Concomitant]
     Dosage: UNK MG, QD
     Dates: start: 201310
  5. OMEPRAZOL                          /00661201/ [Concomitant]
     Dosage: 1X 20 MG, UNK
  6. DICLOFENAC [Concomitant]
     Dosage: 1X 100 MG + 1 X 50 MG, UNK

REACTIONS (3)
  - Scar [Unknown]
  - Fall [Unknown]
  - Hip fracture [Recovered/Resolved with Sequelae]
